FAERS Safety Report 25734807 (Version 1)
Quarter: 2025Q3

REPORT INFORMATION
  Report Type: Spontaneous
  Country: AR (occurrence: AR)
  Receive Date: 20250828
  Receipt Date: 20250828
  Transmission Date: 20251020
  Serious: Yes (Other)
  Sender: ROCHE
  Company Number: AR-002147023-NVSC2025AR109378

PATIENT
  Age: 68 Year
  Sex: Female

DRUGS (1)
  1. XOLAIR [Suspect]
     Active Substance: OMALIZUMAB
     Indication: Asthma
     Dosage: UNK, QMO (150 MG/ML)
     Route: 058
     Dates: start: 20090101

REACTIONS (4)
  - Bronchiectasis [Unknown]
  - Pyrexia [Recovered/Resolved]
  - Cough [Recovered/Resolved]
  - Bronchitis [Recovered/Resolved]

NARRATIVE: CASE EVENT DATE: 20250702
